FAERS Safety Report 12426987 (Version 1)
Quarter: 2016Q2

REPORT INFORMATION
  Report Type: Spontaneous
  Country: US (occurrence: US)
  Receive Date: 20160601
  Receipt Date: 20160601
  Transmission Date: 20160815
  Serious: No
  Sender: FDA-Public Use
  Company Number: US-SEPTODONT-201603319

PATIENT
  Age: 67 Year
  Sex: Female

DRUGS (2)
  1. SEPTOCAINE AND EPINEPHRINE [Suspect]
     Active Substance: ARTICAINE HYDROCHLORIDE\EPINEPHRINE BITARTRATE
     Indication: LOCAL ANAESTHESIA
     Dosage: 1/2 CARPULE ADMINISTERED VIA INFILTRATION WITH MONOJECT 30G SHORT NEEDLE FOR FILLING IN UL PREMOLAR
     Route: 004
     Dates: start: 20160321, end: 20160321
  2. HURRICAINE [Concomitant]
     Active Substance: BENZOCAINE
     Indication: LOCAL ANAESTHESIA
     Dosage: APPLIED PRIOR TO INJECTION
     Route: 061

REACTIONS (3)
  - Nausea [Recovered/Resolved]
  - Dizziness [Recovered/Resolved]
  - Vomiting [Recovered/Resolved]

NARRATIVE: CASE EVENT DATE: 20160321
